FAERS Safety Report 5167362-1 (Version None)
Quarter: 2006Q4

REPORT INFORMATION
  Report Type: 
  Country: None (occurrence: None)
  Receive Date: 20061130
  Receipt Date: 20061117
  Transmission Date: 20070319
  Serious: Yes (Other)
  Sender: FDA-Public Use
  Company Number: 2006144068

PATIENT
  Age: 42 Year
  Sex: Female

DRUGS (1)
  1. MEDROXYPROGESTERONE ACETATE [Suspect]
     Indication: CONTRACEPTION
     Dosage: (FIRST INJECTION), INTRAMUSCULAR
     Route: 030
     Dates: start: 20030101, end: 20030101

REACTIONS (3)
  - CONDUCTIVE DEAFNESS [None]
  - MASTOIDITIS [None]
  - NASOPHARYNGITIS [None]
